FAERS Safety Report 11205699 (Version 1)
Quarter: 2015Q2

REPORT INFORMATION
  Report Type: Spontaneous
  Country: US (occurrence: US)
  Receive Date: 20150622
  Receipt Date: 20150622
  Transmission Date: 20150821
  Serious: Yes (Other)
  Sender: FDA-Public Use
  Company Number: US-SA-2015SA085782

PATIENT
  Age: 68 Year
  Sex: Male

DRUGS (2)
  1. SOLOSTAR [Concomitant]
     Active Substance: DEVICE
     Indication: TYPE 2 DIABETES MELLITUS
  2. LANTUS SOLOSTAR [Suspect]
     Active Substance: INSULIN GLARGINE
     Indication: TYPE 2 DIABETES MELLITUS
     Dosage: THERAPY START DOSE: 4-5 YEARS DOSE:18 UNIT(S)
     Route: 065

REACTIONS (6)
  - Leg amputation [Unknown]
  - Disability [Unknown]
  - Localised infection [Unknown]
  - Feeding disorder [Unknown]
  - Vomiting [Unknown]
  - Kidney infection [Unknown]

NARRATIVE: CASE EVENT DATE: 2013
